FAERS Safety Report 17431742 (Version 2)
Quarter: 2020Q1

REPORT INFORMATION
  Report Type: Report from Study
  Country: EG (occurrence: EG)
  Receive Date: 20200218
  Receipt Date: 20200221
  Transmission Date: 20200409
  Serious: Yes (Disabling, Other)
  Sender: FDA-Public Use
  Company Number: NVSC2020EG040650

PATIENT
  Age: 58 Year
  Sex: Female

DRUGS (1)
  1. AFINITOR [Suspect]
     Active Substance: EVEROLIMUS
     Indication: BREAST CANCER
     Dosage: 1 DF, QD (ONE TABLET ONCE DAILY)
     Route: 048
     Dates: start: 201909, end: 201912

REACTIONS (5)
  - Metastases to bone [Unknown]
  - Liver function test increased [Not Recovered/Not Resolved]
  - Metastases to lymph nodes [Unknown]
  - Hepatic fibrosis [Not Recovered/Not Resolved]
  - Pneumonia [Not Recovered/Not Resolved]

NARRATIVE: CASE EVENT DATE: 201912
